FAERS Safety Report 6918048-1 (Version None)
Quarter: 2010Q3

REPORT INFORMATION
  Report Type: 
  Country: None (occurrence: None)
  Receive Date: 20100810
  Receipt Date: 20090930
  Transmission Date: 20110219
  Serious: No
  Sender: FDA-Public Use
  Company Number: US-PFIZER INC-2009277271

PATIENT
  Sex: Female

DRUGS (2)
  1. TOVIAZ [Suspect]
  2. ENABLEX [Suspect]

REACTIONS (2)
  - CONSTIPATION [None]
  - DYSURIA [None]
